FAERS Safety Report 8502961-8 (Version None)
Quarter: 2012Q3

REPORT INFORMATION
  Report Type: 
  Country: None (occurrence: None)
  Receive Date: 20120711
  Receipt Date: 20120706
  Transmission Date: 20120928
  Serious: No
  Sender: FDA-Public Use
  Company Number: US-B.I. PHARMACEUTICALS,INC./RIDGEFIELD-2011-BP-23726BP

PATIENT
  Age: 76 Year
  Sex: Female

DRUGS (4)
  1. SOTALOL HCL [Concomitant]
     Indication: HYPERTENSION
     Dosage: 240 MG
     Route: 048
  2. SYNTHROID [Concomitant]
     Indication: HYPOTHYROIDISM
  3. POTASSIUM CHLORIDE [Concomitant]
     Indication: SUPPLEMENTATION THERAPY
     Route: 048
  4. PRADAXA [Suspect]
     Indication: ATRIAL FIBRILLATION
     Dosage: 300 MG
     Route: 048
     Dates: start: 20101101, end: 20120501

REACTIONS (2)
  - BLOOD DISORDER [None]
  - OEDEMA PERIPHERAL [None]
